FAERS Safety Report 12546428 (Version 5)
Quarter: 2016Q3

REPORT INFORMATION
  Report Type: Spontaneous
  Country: FR (occurrence: FR)
  Receive Date: 20160711
  Receipt Date: 20160727
  Transmission Date: 20161109
  Serious: Yes (Other)
  Sender: FDA-Public Use
  Company Number: FR-PFIZER INC-2016327844

PATIENT
  Age: 43 Year
  Sex: Female

DRUGS (14)
  1. LOVENOX [Suspect]
     Active Substance: ENOXAPARIN SODIUM
     Indication: THROMBOSIS PROPHYLAXIS
     Dosage: 4000 IU, QD
     Route: 058
     Dates: start: 20150507, end: 20150515
  2. DROLEPTAN [Concomitant]
     Active Substance: DROPERIDOL
     Dosage: UNK
     Dates: start: 20150503, end: 20150507
  3. EUPANTOL [Suspect]
     Active Substance: PANTOPRAZOLE SODIUM
     Indication: PROPHYLAXIS AGAINST GASTROINTESTINAL ULCER
     Dosage: 40 MG, QD
     Route: 042
     Dates: start: 20150430, end: 20150506
  4. ACTISKENAN [Suspect]
     Active Substance: MORPHINE SULFATE
     Indication: PAIN
     Dosage: 5 MG, ON DEMAND
     Route: 048
     Dates: start: 20150503, end: 20150513
  5. INSULIN [Concomitant]
     Active Substance: INSULIN NOS
     Dosage: UNK
     Dates: start: 20150428
  6. DALACINE [Suspect]
     Active Substance: CLINDAMYCIN HYDROCHLORIDE
     Indication: ERYSIPELAS
     Dosage: 600 MG, QID
     Route: 042
     Dates: start: 20150429, end: 20150512
  7. EUPANTOL [Suspect]
     Active Substance: PANTOPRAZOLE SODIUM
     Indication: PROPHYLAXIS AGAINST GASTROINTESTINAL ULCER
     Dosage: 40 MG, QD
     Route: 048
     Dates: start: 20150507, end: 20150513
  8. GENTAMICIN. [Concomitant]
     Active Substance: GENTAMICIN
     Indication: ERYSIPELAS
     Dosage: UNK
     Dates: start: 20150429, end: 20150501
  9. OFLOCET /00731801/ [Suspect]
     Active Substance: OFLOXACIN
     Indication: ESCHERICHIA URINARY TRACT INFECTION
     Dosage: 200 MG, BID
     Route: 042
     Dates: start: 20150501, end: 20150507
  10. OFLOCET /00731801/ [Suspect]
     Active Substance: OFLOXACIN
     Dosage: 200 MG, BID
     Route: 048
     Dates: start: 20150507, end: 20150509
  11. HEPARIN SODIUM. [Concomitant]
     Active Substance: HEPARIN SODIUM
     Dosage: UNK
     Route: 050
     Dates: end: 20150507
  12. ZOPHREN [Concomitant]
     Active Substance: ONDANSETRON
     Dosage: UNK
     Dates: start: 20150503, end: 20150507
  13. PYOSTACINE [Concomitant]
     Active Substance: PRISTINAMYCIN
     Indication: ERYSIPELAS
     Dosage: UNK
     Dates: start: 201504, end: 20150429
  14. VANCOMYCIN [Concomitant]
     Active Substance: VANCOMYCIN
     Indication: ERYSIPELAS
     Dosage: UNK
     Dates: start: 20150429, end: 20150501

REACTIONS (2)
  - Urticaria [Recovered/Resolved]
  - Lip oedema [Recovered/Resolved]

NARRATIVE: CASE EVENT DATE: 20150509
